FAERS Safety Report 8379950-X (Version None)
Quarter: 2012Q1

REPORT INFORMATION
  Report Type: 
  Country: None (occurrence: None)
  Receive Date: 20120323
  Receipt Date: 20110714
  Transmission Date: 20120608
  Serious: Yes (Hospitalization, Other)
  Sender: FDA-Public Use
  Company Number: 163-21880-11040422

PATIENT
  Age: 75 Year
  Sex: Female
  Weight: 79.3795 kg

DRUGS (6)
  1. RESTORIL [Concomitant]
  2. REVLIMID [Suspect]
     Indication: MYELODYSPLASTIC SYNDROME
     Dosage: 25 MG, DAILY FOR 21 DAYS OFF 7 DAYS, PO
     Route: 048
     Dates: start: 20110317, end: 20110407
  3. REVLIMID [Suspect]
     Indication: ACUTE LYMPHOCYTIC LEUKAEMIA
     Dosage: 25 MG, DAILY FOR 21 DAYS OFF 7 DAYS, PO
     Route: 048
     Dates: start: 20110317, end: 20110407
  4. THALIZIDE (CHLORTALIDONE) [Concomitant]
  5. EXJADE [Concomitant]
  6. REQUIP [Concomitant]

REACTIONS (6)
  - FATIGUE [None]
  - RASH [None]
  - ASTHENIA [None]
  - HYPOTENSION [None]
  - ANAEMIA [None]
  - DRUG INEFFECTIVE [None]
